FAERS Safety Report 10899774 (Version 2)
Quarter: 2015Q2

REPORT INFORMATION
  Report Type: Spontaneous
  Country: VE (occurrence: VE)
  Receive Date: 20150310
  Receipt Date: 20150407
  Transmission Date: 20150821
  Serious: Yes (Death, Life-Threatening, Hospitalization)
  Sender: FDA-Public Use
  Company Number: PHHY2015VE025257

PATIENT
  Age: 31 Year
  Sex: Male

DRUGS (3)
  1. MYFORTIC [Suspect]
     Active Substance: MYCOPHENOLATE SODIUM
     Dosage: HALF DOSE
     Route: 065
     Dates: start: 201501
  2. PREDNISONA [Concomitant]
     Active Substance: PREDNISONE
     Indication: PRODUCT USED FOR UNKNOWN INDICATION
     Dosage: 40 MG, QD
     Route: 065
  3. MYFORTIC [Suspect]
     Active Substance: MYCOPHENOLATE SODIUM
     Indication: GLOMERULONEPHROPATHY
     Dosage: 720 MG, BID
     Route: 065
     Dates: start: 201411, end: 201501

REACTIONS (8)
  - Septic shock [Fatal]
  - Abdominal pain [Unknown]
  - Respiratory arrest [Fatal]
  - Intestinal perforation [Unknown]
  - Pyrexia [Unknown]
  - Product use issue [Unknown]
  - Condition aggravated [Unknown]
  - Diarrhoea [Unknown]

NARRATIVE: CASE EVENT DATE: 201412
